FAERS Safety Report 5430404-X (Version None)
Quarter: 2007Q3

REPORT INFORMATION
  Report Type: 
  Country: None (occurrence: None)
  Receive Date: 20070828
  Receipt Date: 20070813
  Transmission Date: 20080115
  Serious: Yes (Other)
  Sender: FDA-Public Use
  Company Number: 100#08#2007-03081

PATIENT
  Age: 62 Year
  Sex: Male

DRUGS (15)
  1. TRAMADOL HCL [Suspect]
     Indication: ANALGESIC THERAPY
     Dosage: 150 MG
  2. FENTANYL [Suspect]
     Indication: ANALGESIC THERAPY
     Dosage: 75 MICROGRAM EVERY 3 DAYS; TRANSDERMAL
     Route: 062
  3. MORPHINE [Suspect]
     Indication: ABDOMINAL PAIN UPPER
     Dosage: 2 MG
  4. REMIFENTANIL (REMIFENTANIL) (REMIFENTANIL) [Suspect]
     Indication: ANAESTHESIA
     Dosage: 100?G FOR INDUCTION OF ANAESTHESIA, PLUS CONTINUOUS ADMINISTRATION FOR MAINTENANCE (TOTAL DOSE: 6.3M
  5. PIRITRAMIDE (PIRITRAMIDE) (PIRITRAMIDE) [Suspect]
     Indication: ANALGESIC THERAPY
     Dosage: 20 MG (2 X 10MG) (10 MG)
  6. PARACETAMOL (PARACETAMOL) (PARACETAMOL) [Concomitant]
  7. PROPOFOL [Concomitant]
  8. CISATRACURIUM (CISATRACURIUM) (CISATRACURIUM) [Concomitant]
  9. PROPARACETAMOL (PROPARACETAMOL) [Concomitant]
  10. AMLODIPINE (AMLODIPINE) (AMLODIPINE) [Concomitant]
  11. CARVEDILOL (CARVEDILOL) (CARVEDILOL) [Concomitant]
  12. LORAZEPAM [Concomitant]
  13. AMITRIPTLINE HCL [Concomitant]
  14. METFORMIN (METFORMIN) (METFORMIN) [Concomitant]
  15. ATORVASTATIN (ATORVASTATIN) (ATORVASTATIN) [Concomitant]

REACTIONS (2)
  - HYPERAESTHESIA [None]
  - PROCEDURAL PAIN [None]
